FAERS Safety Report 10523148 (Version 1)
Quarter: 2014Q4

REPORT INFORMATION
  Report Type: Spontaneous
  Country: US (occurrence: US)
  Receive Date: 20141016
  Receipt Date: 20141016
  Transmission Date: 20150528
  Serious: No
  Sender: FDA-Public Use
  Company Number: US-MYLANLABS-2014S1017772

PATIENT
  Sex: Female

DRUGS (3)
  1. NEUPRO [Concomitant]
     Active Substance: ROTIGOTINE
     Dosage: UNK
  2. AZILECT [Concomitant]
     Active Substance: RASAGILINE MESYLATE
     Dosage: UNK
  3. CARBIDOPA AND LEVODOPA [Suspect]
     Active Substance: CARBIDOPA\LEVODOPA
     Indication: PARKINSON^S DISEASE
     Dosage: 25 MG,Q5H
     Route: 048
     Dates: start: 20140707

REACTIONS (3)
  - Tremor [Not Recovered/Not Resolved]
  - Regurgitation [Not Recovered/Not Resolved]
  - Abdominal discomfort [Not Recovered/Not Resolved]

NARRATIVE: CASE EVENT DATE: 201407
